FAERS Safety Report 7134346-3 (Version None)
Quarter: 2010Q4

REPORT INFORMATION
  Report Type: 
  Country: None (occurrence: None)
  Receive Date: 20101117
  Receipt Date: 20101102
  Transmission Date: 20110411
  Serious: Yes (Hospitalization)
  Sender: FDA-Public Use
  Company Number: 2010EU005812

PATIENT
  Sex: Male

DRUGS (2)
  1. VESICARE [Suspect]
     Dosage: 5 MG, BID ; 10 MG, BID ; 10 MG, UID/QD
  2. FINASTERIDE [Concomitant]

REACTIONS (2)
  - DRUG PRESCRIBING ERROR [None]
  - DYSPNOEA [None]
